FAERS Safety Report 4368949-6 (Version None)
Quarter: 2004Q2

REPORT INFORMATION
  Report Type: 
  Country: None (occurrence: None)
  Receive Date: 20040525
  Receipt Date: 20040512
  Transmission Date: 20050107
  Serious: Yes (Disabling, Other)
  Sender: FDA-Public Use
  Company Number: 2004032185

PATIENT
  Sex: Female

DRUGS (6)
  1. DILANTIN KAPSEAL [Suspect]
     Indication: CONVULSION
     Dosage: 300 MG (100 MG, 2 IN 1 D), ORAL
     Route: 048
  2. ALL OTHER NON-THERAPEUTIC PRODUCTS (ALL OTHER NON-THERAPEUTIC PRODUCTS [Suspect]
     Indication: ILL-DEFINED DISORDER
     Dosage: ORAL
     Route: 048
  3. CALCITONIN, SALMON (CALCITONIN, SALMON) [Concomitant]
  4. MULTIVITAMINS (ASCORBIC ACID, ERGOCALCIFEROL, FOLIC ACID, NICOTINAMIDE [Concomitant]
  5. ARTHROTEC [Concomitant]
  6. CALCIUM D SAUTER (ASCORBIC ACID, CALCIUM GLUCONATE, CALCIUM LACTATE, C [Concomitant]

REACTIONS (7)
  - CORONARY ARTERY INSUFFICIENCY [None]
  - FOOD INTERACTION [None]
  - LYMPHOEDEMA [None]
  - MENTAL RETARDATION SEVERITY UNSPECIFIED [None]
  - OSTEOARTHRITIS [None]
  - OSTEOPOROSIS [None]
  - SCHIZOPHRENIA [None]
